FAERS Safety Report 17963197 (Version 2)
Quarter: 2020Q3

REPORT INFORMATION
  Report Type: Spontaneous
  Country: US (occurrence: US)
  Receive Date: 20200630
  Receipt Date: 20200721
  Transmission Date: 20201103
  Serious: Yes (Hospitalization)
  Sender: FDA-Public Use
  Company Number: US-VERTEX PHARMACEUTICALS-2020-013708

PATIENT
  Sex: Male
  Weight: 31 kg

DRUGS (3)
  1. SYMDEKO [Suspect]
     Active Substance: IVACAFTOR\TEZACAFTOR
     Indication: CYSTIC FIBROSIS
     Dosage: 1 YELLOW TAB (100MG TEZA/150MG IVA) AM; (1 BLUE TABLET 150MG IVA) PM
     Route: 048
  2. CREON [Concomitant]
     Active Substance: PANCRELIPASE AMYLASE\PANCRELIPASE LIPASE\PANCRELIPASE PROTEASE
     Dosage: 12K?38K?60
  3. LORATADINE. [Concomitant]
     Active Substance: LORATADINE
     Dosage: 10MG?240MG, 24 HOURS

REACTIONS (1)
  - Infection [Unknown]

NARRATIVE: CASE EVENT DATE: 2020
